FAERS Safety Report 11055614 (Version 1)
Quarter: 2015Q2

REPORT INFORMATION
  Report Type: Spontaneous
  Country: US (occurrence: None)
  Receive Date: 20150421
  Receipt Date: 20150421
  Transmission Date: 20150821
  Serious: Yes (Other)
  Sender: FDA-Public Use
  Company Number: None

PATIENT
  Age: 54 Year
  Sex: Female
  Weight: 60.78 kg

DRUGS (8)
  1. MAGNESIUM [Concomitant]
     Active Substance: MAGNESIUM
  2. ATENOLOL. [Concomitant]
     Active Substance: ATENOLOL
  3. ZANTAC [Concomitant]
     Active Substance: RANITIDINE HYDROCHLORIDE
  4. FISH OIL [Concomitant]
     Active Substance: FISH OIL
  5. PRILOSEC [Concomitant]
     Active Substance: OMEPRAZOLE MAGNESIUM
  6. CALCIUM [Concomitant]
     Active Substance: CALCIUM
  7. VITAMIN D [Concomitant]
     Active Substance: CHOLECALCIFEROL
  8. HYDROXYCHLOROQUINE [Suspect]
     Active Substance: HYDROXYCHLOROQUINE
     Indication: MIXED CONNECTIVE TISSUE DISEASE
     Dosage: 1 1/2 TABS  QD  ORAL
     Route: 048
     Dates: start: 20150403, end: 20150416

REACTIONS (11)
  - Condition aggravated [None]
  - Abdominal pain upper [None]
  - Fatigue [None]
  - Rash [None]
  - Product quality issue [None]
  - Product substitution issue [None]
  - Dizziness [None]
  - Impaired work ability [None]
  - Mixed connective tissue disease [None]
  - Headache [None]
  - Vision blurred [None]

NARRATIVE: CASE EVENT DATE: 20150416
